FAERS Safety Report 20288702 (Version 1)
Quarter: 2022Q1

REPORT INFORMATION
  Report Type: Report from Study
  Country: US (occurrence: US)
  Receive Date: 20220104
  Receipt Date: 20220104
  Transmission Date: 20220423
  Serious: Yes (Hospitalization, Other)
  Sender: FDA-Public Use
  Company Number: US-ORPHANEU-2021005474

PATIENT

DRUGS (2)
  1. ISTURISA [Suspect]
     Active Substance: OSILODROSTAT PHOSPHATE
     Indication: Pituitary-dependent Cushing^s syndrome
     Dosage: 4 MILLIGRAM, IN AM AND 4 MILLIGRAM IN PM
     Route: 048
     Dates: start: 20210103
  2. LEXAPRO [Suspect]
     Active Substance: ESCITALOPRAM OXALATE
     Indication: Anxiety
     Dosage: UNK
     Dates: end: 2021

REACTIONS (5)
  - Surgery [Not Recovered/Not Resolved]
  - Anxiety [Not Recovered/Not Resolved]
  - Haematochezia [Not Recovered/Not Resolved]
  - Alopecia [Not Recovered/Not Resolved]
  - Hair growth rate abnormal [Not Recovered/Not Resolved]

NARRATIVE: CASE EVENT DATE: 20210101
